FAERS Safety Report 6556439-1 (Version None)
Quarter: 2010Q1

REPORT INFORMATION
  Report Type: 
  Country: None (occurrence: None)
  Receive Date: 20100128
  Receipt Date: 20100125
  Transmission Date: 20100710
  Serious: Yes (Other)
  Sender: FDA-Public Use
  Company Number: B0628937A

PATIENT
  Sex: Male

DRUGS (2)
  1. AUGMENTIN [Suspect]
     Indication: DRUG USE FOR UNKNOWN INDICATION
     Dosage: 1UNIT SINGLE DOSE
     Route: 048
     Dates: start: 20080301
  2. COLCHICINE [Concomitant]
     Indication: FAMILIAL MEDITERRANEAN FEVER
     Route: 065
     Dates: start: 20030101

REACTIONS (9)
  - ANAPHYLACTOID REACTION [None]
  - ANGIOEDEMA [None]
  - CONJUNCTIVITIS [None]
  - DYSPHONIA [None]
  - DYSPNOEA [None]
  - HYPERSENSITIVITY [None]
  - PRURITUS [None]
  - SKIN TEST NEGATIVE [None]
  - URTICARIA [None]
